FAERS Safety Report 6000995 (Version 2)
Quarter: 2020Q1

REPORT INFORMATION
  Report Type: Spontaneous
  Country: GR (occurrence: GR)
  Receive Date: 20060309
  Receipt Date: 20200302
  Transmission Date: 20200409
  Serious: Yes (Death, Hospitalization, Other)
  Sender: FDA-Public Use
  Company Number: GR-GLAXOSMITHKLINE-B0414881A

PATIENT
  Age: 75 Year
  Sex: Male

DRUGS (1)
  1. TIMENTIN [Suspect]
     Active Substance: CLAVULANATE POTASSIUM\TICARCILLIN DISODIUM
     Indication: LOWER RESPIRATORY TRACT INFECTION
     Dosage: 5.2 G, Z
     Route: 042
     Dates: start: 200602, end: 200602

REACTIONS (3)
  - Loss of consciousness [Fatal]
  - Syncope [Fatal]
  - Blood pressure decreased [Fatal]

NARRATIVE: CASE EVENT DATE: 200602
